FAERS Safety Report 10094056 (Version 3)
Quarter: 2014Q2

REPORT INFORMATION
  Report Type: Report from Study
  Country: US (occurrence: US)
  Receive Date: 20140422
  Receipt Date: 20140630
  Transmission Date: 20141212
  Serious: Yes (Death)
  Sender: FDA-Public Use
  Company Number: US-PFIZER INC-2014109752

PATIENT
  Age: 58 Year
  Sex: Male

DRUGS (11)
  1. NEURONTIN [Suspect]
     Dosage: 300 MG, 3X/DAY
     Route: 048
  2. HYDROCORTISONE ACETATE [Suspect]
     Dosage: 2.5 %, 2X/DAY
     Route: 061
  3. AMPYRA [Suspect]
     Indication: MULTIPLE SCLEROSIS
     Dosage: 10 MG, 2X/DAY
     Route: 048
     Dates: start: 201101
  4. VALIUM [Suspect]
     Indication: NUCLEAR MAGNETIC RESONANCE IMAGING
     Dosage: 5 MG, AS NEEDED
     Route: 048
     Dates: start: 20130122
  5. TECFIDERA [Concomitant]
     Dosage: 240 MG, 2X/DAY
  6. ASPIRIN [Concomitant]
     Dosage: 1 DF, DAILY
     Route: 048
  7. LORAZEPAM [Concomitant]
     Dosage: 0.5 MG THREE TIMES DAILY AS NEEDED
     Route: 048
  8. MAXALT [Concomitant]
     Indication: HEADACHE
     Dosage: 10 MG, UNK
     Route: 048
  9. VENLAFAXINE HYDROCHLORIDE [Concomitant]
     Dosage: 150 MG, DAILY
     Route: 048
  10. TEGRETOL [Concomitant]
     Dosage: 400 MG, DAILY
     Route: 048
  11. BACLOFEN [Concomitant]
     Dosage: 10 MG TWICE DAILY AS NEEDED
     Route: 048

REACTIONS (1)
  - Death [Fatal]
